FAERS Safety Report 7983195 (Version 2)
Quarter: 2013Q1

REPORT INFORMATION
  Report Type: Report from Study
  Country: US (occurrence: US)
  Receive Date: 20110609
  Receipt Date: 20130122
  Transmission Date: 20140127
  Serious: Yes (Death)
  Sender: FDA-Public Use
  Company Number: US-ASTELLAS-2011US002746

PATIENT
  Sex: Female
  Weight: 53 kg

DRUGS (2)
  1. BLINDED ERLOTINIB TABLET [Suspect]
     Indication: HEPATIC CANCER
     Dosage: 150 MG, UID/QD
     Route: 048
     Dates: start: 20100303, end: 20100423
  2. SORAFENIB [Suspect]
     Indication: HEPATIC CANCER
     Dosage: 400 MG, BID
     Route: 048
     Dates: start: 20100303, end: 20100423

REACTIONS (1)
  - Death [Fatal]
